FAERS Safety Report 19084102 (Version 1)
Quarter: 2021Q2

REPORT INFORMATION
  Report Type: Spontaneous
  Country: US (occurrence: US)
  Receive Date: 20210401
  Receipt Date: 20210401
  Transmission Date: 20210717
  Serious: No
  Sender: FDA-Public Use
  Company Number: US-PFIZER INC-2021318863

PATIENT
  Age: 55 Year

DRUGS (1)
  1. ESTRADIOL CIPIONATE [Suspect]
     Active Substance: ESTRADIOL CYPIONATE
     Dosage: UNK

REACTIONS (3)
  - Drug ineffective [Unknown]
  - Night sweats [Unknown]
  - Disturbance in attention [Unknown]
